FAERS Safety Report 5481685-8 (Version None)
Quarter: 2007Q3

REPORT INFORMATION
  Report Type: 
  Country: None (occurrence: None)
  Receive Date: 20070913
  Receipt Date: 20060905
  Transmission Date: 20080115
  Serious: Yes (Other)
  Sender: FDA-Public Use
  Company Number: PHEH2006US10909

PATIENT
  Age: 76 Year
  Sex: Male

DRUGS (3)
  1. DIOVAN [Suspect]
     Indication: HYPERTENSION
     Dosage: 160 MG, QD, ORAL
     Route: 048
     Dates: start: 20050101
  2. LASIX [Suspect]
     Indication: HYPERTENSION
  3. TOPROL-XL [Concomitant]

REACTIONS (2)
  - DEHYDRATION [None]
  - SYNCOPE [None]
